FAERS Safety Report 11817227 (Version 2)
Quarter: 2016Q3

REPORT INFORMATION
  Report Type: Spontaneous
  Country: US (occurrence: US)
  Receive Date: 20151210
  Receipt Date: 20160929
  Transmission Date: 20161109
  Serious: No
  Sender: FDA-Public Use
  Company Number: US-JNJFOC-20151115319

PATIENT
  Sex: Male

DRUGS (6)
  1. RISPERDAL [Suspect]
     Active Substance: RISPERIDONE
     Indication: MOOD SWINGS
     Dosage: 0.25MG, 1MG, 2MG OF RISPERDONE 1 IN THE MORNING AND 1 AFTER SCHOOL
     Route: 048
     Dates: start: 20100606, end: 20140122
  2. RISPERDAL [Suspect]
     Active Substance: RISPERIDONE
     Indication: AUTISM SPECTRUM DISORDER
     Dosage: 0.25MG, 1MG, 2MG OF RISPERDONE 1 IN THE MORNING AND 1 AFTER SCHOOL
     Route: 048
     Dates: start: 20100606, end: 20140122
  3. RISPERDAL [Suspect]
     Active Substance: RISPERIDONE
     Indication: OPPOSITIONAL DEFIANT DISORDER
     Dosage: 0.25MG, 1MG, 2MG OF RISPERDONE 1 IN THE MORNING AND 1 AFTER SCHOOL
     Route: 048
     Dates: start: 20100606, end: 20140122
  4. RISPERDAL [Suspect]
     Active Substance: RISPERIDONE
     Indication: ATTENTION DEFICIT/HYPERACTIVITY DISORDER
     Dosage: 0.25MG, 1MG, 2MG OF RISPERDONE 1 IN THE MORNING AND 1 AFTER SCHOOL
     Route: 048
     Dates: start: 20100606, end: 20140122
  5. RISPERDAL [Suspect]
     Active Substance: RISPERIDONE
     Indication: PRODUCT USED FOR UNKNOWN INDICATION
     Dosage: 0.25MG, 1MG, 2MG OF RISPERDONE 1 IN THE MORNING AND 1 AFTER SCHOOL
     Route: 048
     Dates: start: 20100606, end: 20140122
  6. INVEGA [Suspect]
     Active Substance: PALIPERIDONE
     Indication: PRODUCT USED FOR UNKNOWN INDICATION
     Route: 048

REACTIONS (2)
  - Weight increased [Unknown]
  - Gynaecomastia [Unknown]

NARRATIVE: CASE EVENT DATE: 2013
